FAERS Safety Report 23866288 (Version 2)
Quarter: 2024Q2

REPORT INFORMATION
  Report Type: Spontaneous
  Country: NL (occurrence: NL)
  Receive Date: 20240517
  Receipt Date: 20240531
  Transmission Date: 20240716
  Serious: Yes (Other)
  Sender: FDA-Public Use
  Company Number: None

PATIENT
  Age: 27 Year
  Sex: Female
  Weight: 116 kg

DRUGS (4)
  1. FREMANEZUMAB [Suspect]
     Active Substance: FREMANEZUMAB
     Indication: Migraine
     Dosage: DOSAGE: 150 MG/ML 1 PIECE EVERY 4 WEEKS, FREMANEZUMAB INJVLST / AJOVY INJVLST 150MG/ML WWSP 1.5ML,
     Route: 065
     Dates: start: 20221106, end: 20230404
  2. AIMOVIG [Suspect]
     Active Substance: ERENUMAB-AOOE
     Indication: Migraine
     Dosage: DOSAGE: 140 MG/ML 1 PIECE ONCE A MONTH, ERENUMAB INJVLST / AIMOVIG INJVLST 140MG/ML PEN 1ML
     Route: 065
     Dates: start: 20230707, end: 20231107
  3. AIMOVIG [Suspect]
     Active Substance: ERENUMAB-AOOE
     Indication: Migraine
     Dosage: DOSAGE: 70 MG/ML 1 PIECE ONCE EVERY 4 WEEKS, ERENUMAB INJVLST / AIMOVIG INJVLST 70MG/ML PEN 1ML
     Route: 065
     Dates: start: 20230405, end: 20230705
  4. EMGALITY [Suspect]
     Active Substance: GALCANEZUMAB-GNLM
     Indication: Migraine
     Dosage: DOSAGE: 120 MG/ML 1 PIECE ONCE EVERY 4 WEEKS, EMGALITY INJVLST 120MG/ML PEN 1ML
     Route: 065
     Dates: start: 20231108, end: 20240410

REACTIONS (4)
  - Sudden hearing loss [Recovering/Resolving]
  - Fatigue [Recovered/Resolved]
  - Breast pain [Recovered/Resolved]
  - Back pain [Not Recovered/Not Resolved]
